FAERS Safety Report 6013629-4 (Version None)
Quarter: 2008Q4

REPORT INFORMATION
  Report Type: 
  Country: None (occurrence: None)
  Receive Date: 20081219
  Receipt Date: 20081208
  Transmission Date: 20090506
  Serious: Yes (Death)
  Sender: FDA-Public Use
  Company Number: JP-ROCHE-565795

PATIENT
  Sex: Female
  Weight: 43 kg

DRUGS (3)
  1. ROCEPHIN [Suspect]
     Indication: PNEUMONIA BACTERIAL
     Route: 041
     Dates: start: 20080501, end: 20080509
  2. SOLITA-T1 [Concomitant]
     Route: 041
     Dates: start: 20080502, end: 20080530
  3. BFLUID [Concomitant]
     Route: 041
     Dates: start: 20080502, end: 20080530

REACTIONS (3)
  - PANCYTOPENIA [None]
  - PNEUMONIA [None]
  - RESPIRATORY FAILURE [None]
